FAERS Safety Report 5199001-8 (Version None)
Quarter: 2007Q1

REPORT INFORMATION
  Report Type: 
  Country: None (occurrence: None)
  Receive Date: 20070104
  Receipt Date: 20061228
  Transmission Date: 20070707
  Serious: Yes (Other)
  Sender: FDA-Public Use
  Company Number: SE-AMGEN-UK193001

PATIENT
  Sex: Male

DRUGS (4)
  1. NEULASTA [Suspect]
     Indication: CHEMOTHERAPY
     Route: 065
  2. BLEOMYCIN [Concomitant]
     Route: 065
  3. CISPLATIN [Concomitant]
     Route: 065
  4. ETOPOSIDE [Concomitant]
     Route: 065

REACTIONS (1)
  - PULMONARY FIBROSIS [None]
